APPROVED DRUG PRODUCT: RIBAVIRIN
Active Ingredient: RIBAVIRIN
Strength: 500MG
Dosage Form/Route: TABLET;ORAL
Application: A077094 | Product #004
Applicant: ZYDUS PHARMACEUTICALS USA INC
Approved: Apr 18, 2008 | RLD: No | RS: No | Type: DISCN